FAERS Safety Report 9294607 (Version 4)
Quarter: 2013Q2

REPORT INFORMATION
  Report Type: Spontaneous
  Country: US (occurrence: US)
  Receive Date: 20130517
  Receipt Date: 20130611
  Transmission Date: 20140414
  Serious: No
  Sender: FDA-Public Use
  Company Number: US-BIOGENIDEC-2013BI043371

PATIENT
  Age: 51 Year
  Sex: Female

DRUGS (4)
  1. AVONEX [Suspect]
     Indication: MULTIPLE SCLEROSIS
     Route: 030
     Dates: start: 20130421, end: 20130427
  2. AVONEX [Suspect]
     Indication: MULTIPLE SCLEROSIS
     Route: 030
     Dates: start: 20130428, end: 20130504
  3. AVONEX [Suspect]
     Indication: MULTIPLE SCLEROSIS
     Route: 030
     Dates: start: 20130505, end: 20130511
  4. AVONEX [Suspect]
     Indication: MULTIPLE SCLEROSIS
     Route: 030
     Dates: start: 20130512

REACTIONS (11)
  - Urinary incontinence [Recovered/Resolved]
  - Balance disorder [Unknown]
  - Gait disturbance [Not Recovered/Not Resolved]
  - Fall [Recovered/Resolved]
  - Incontinence [Not Recovered/Not Resolved]
  - General symptom [Unknown]
  - Abasia [Not Recovered/Not Resolved]
  - Headache [Recovered/Resolved]
  - Dizziness [Recovered/Resolved]
  - Muscular weakness [Not Recovered/Not Resolved]
  - Asthenia [Not Recovered/Not Resolved]
